FAERS Safety Report 8318584-X (Version None)
Quarter: 2012Q2

REPORT INFORMATION
  Report Type: 
  Country: None (occurrence: None)
  Receive Date: 20120426
  Receipt Date: 20120426
  Transmission Date: 20120825
  Serious: Yes (Hospitalization)
  Sender: FDA-Public Use
  Company Number: None

PATIENT
  Age: 66 Year
  Sex: Male
  Weight: 65 kg

DRUGS (2)
  1. TEMOZOLOMIDE [Suspect]
     Indication: GLIOBLASTOMA
     Dosage: 75MG/M2 = 130 MG DAYS 1-21 ORAL
     Route: 048
     Dates: start: 20120228, end: 20120417
  2. BEVACIZUMAB [Suspect]
     Indication: GLIOBLASTOMA
     Dosage: 10MG/KG - 650MG DAY 1 + 15 IV
     Route: 042
     Dates: start: 20120228, end: 20120411

REACTIONS (4)
  - INTRACRANIAL PRESSURE INCREASED [None]
  - BRAIN HERNIATION [None]
  - BRAIN COMPRESSION [None]
  - HYDROCEPHALUS [None]
